FAERS Safety Report 22136903 (Version 2)
Quarter: 2023Q2

REPORT INFORMATION
  Report Type: Spontaneous
  Country: US (occurrence: US)
  Receive Date: 20230324
  Receipt Date: 20230418
  Transmission Date: 20230722
  Serious: Yes (Life-Threatening, Hospitalization, Other)
  Sender: FDA-Public Use
  Company Number: US-BRISTOL-MYERS SQUIBB COMPANY-2023-043044

PATIENT
  Age: 70 Year
  Sex: Male

DRUGS (2)
  1. ORENCIA [Suspect]
     Active Substance: ABATACEPT
     Indication: Rheumatoid arthritis
     Dosage: FREQ: ^PATIENT HAS ONLY HAD ONE DOSE^
     Route: 042
     Dates: start: 20230201, end: 20230201
  2. ORENCIA [Suspect]
     Active Substance: ABATACEPT
     Dosage: FREQ: ^PATIENT HAS ONLY HAD ONE DOSE^
     Route: 042
     Dates: start: 20230201, end: 20230201

REACTIONS (2)
  - Hypersensitivity [Recovered/Resolved]
  - Fatigue [Unknown]

NARRATIVE: CASE EVENT DATE: 20230201
